FAERS Safety Report 12990872 (Version 1)
Quarter: 2016Q4

REPORT INFORMATION
  Report Type: Spontaneous
  Country: FR (occurrence: FR)
  Receive Date: 20161201
  Receipt Date: 20161201
  Transmission Date: 20170207
  Serious: Yes (Death, Other)
  Sender: FDA-Public Use
  Company Number: FR-BRISTOL-MYERS SQUIBB COMPANY-BMS-2016-099349

PATIENT
  Age: 75 Year
  Sex: Male

DRUGS (3)
  1. CALCIPARINE [Suspect]
     Active Substance: HEPARIN CALCIUM
     Indication: HEART VALVE REPLACEMENT
     Dosage: 12500 IU, BID
     Route: 058
     Dates: start: 20151009, end: 20151015
  2. KARDEGIC [Suspect]
     Active Substance: ASPIRIN LYSINE
     Indication: PRODUCT USED FOR UNKNOWN INDICATION
     Dosage: 1 DF, QD
     Route: 048
     Dates: end: 20151015
  3. COUMADINE [Suspect]
     Active Substance: WARFARIN SODIUM
     Indication: PRODUCT USED FOR UNKNOWN INDICATION
     Dosage: 1 DF, QD
     Route: 048
     Dates: end: 20151015

REACTIONS (3)
  - Transfusion [Unknown]
  - Hydrocephalus [Fatal]
  - Cerebellar haematoma [Fatal]

NARRATIVE: CASE EVENT DATE: 20151015
